FAERS Safety Report 8561789 (Version 2)
Quarter: 2012Q4

REPORT INFORMATION
  Report Type: 
  Country: US (occurrence: US)
  Receive Date: 20120515
  Receipt Date: 20121030
  Transmission Date: 20130627
  Serious: Yes (Hospitalization)
  Sender: FDA-Public Use
  Company Number: US-US-EMD SERONO, INC.-7131232

PATIENT
  Sex: Female
  Weight: 112 kg

DRUGS (5)
  1. REBIF [Suspect]
     Indication: MULTIPLE SCLEROSIS
     Route: 058
     Dates: start: 20110202
  2. BACLOFEN [Concomitant]
     Indication: MUSCLE SPASMS
     Route: 048
  3. GABAPENTIN [Concomitant]
     Indication: CONVULSION
     Route: 048
  4. TOPIRAMATE [Concomitant]
     Indication: CONVULSION
     Route: 048
  5. VIMPAT [Concomitant]
     Indication: CONVULSION
     Route: 048

REACTIONS (2)
  - Unresponsive to stimuli [Recovered/Resolved]
  - Frontal lobe epilepsy [Unknown]
